FAERS Safety Report 4974275-4 (Version None)
Quarter: 2006Q2

REPORT INFORMATION
  Report Type: 
  Country: None (occurrence: None)
  Receive Date: 20060417
  Receipt Date: 20050805
  Transmission Date: 20061013
  Serious: Yes (Hospitalization, Other)
  Sender: FDA-Public Use
  Company Number: US-MERCK-0508USA01477

PATIENT
  Age: 60 Year
  Sex: Male
  Weight: 102 kg

DRUGS (6)
  1. VIOXX [Suspect]
     Indication: ARTHRALGIA
     Route: 048
     Dates: start: 20000511, end: 20040930
  2. VIOXX [Suspect]
     Indication: OSTEOARTHRITIS
     Route: 048
     Dates: start: 20000511, end: 20040930
  3. ASPIRIN [Concomitant]
     Route: 065
  4. ZOCOR [Concomitant]
     Route: 048
  5. ATACAND [Concomitant]
     Route: 048
  6. CLARITIN [Concomitant]
     Route: 048

REACTIONS (27)
  - ARTERIOSCLEROSIS CORONARY ARTERY [None]
  - ARTHRITIS [None]
  - BRONCHITIS [None]
  - CARDIOVASCULAR DISORDER [None]
  - CONSTIPATION [None]
  - CORONARY ARTERY DISEASE [None]
  - COUGH [None]
  - HAEMOGLOBIN DECREASED [None]
  - HAEMORRHOIDS [None]
  - HYPERLIPIDAEMIA [None]
  - HYPERTENSION [None]
  - HYPERVENTILATION [None]
  - HYPOTENSION [None]
  - INADEQUATE ANALGESIA [None]
  - INAPPROPRIATE AFFECT [None]
  - JOINT SWELLING [None]
  - MYOCARDIAL INFARCTION [None]
  - POSTOPERATIVE ABSCESS [None]
  - PROSTATE CANCER [None]
  - PROSTATE CANCER RECURRENT [None]
  - PULMONARY HYPERTENSION [None]
  - RECTAL HAEMORRHAGE [None]
  - RHINITIS ALLERGIC [None]
  - SLEEP APNOEA SYNDROME [None]
  - TACHYCARDIA [None]
  - VENTRICULAR EXTRASYSTOLES [None]
  - WOUND INFECTION STAPHYLOCOCCAL [None]
